FAERS Safety Report 8478513-5 (Version None)
Quarter: 2012Q2

REPORT INFORMATION
  Report Type: 
  Country: None (occurrence: None)
  Receive Date: 20120629
  Receipt Date: 20120618
  Transmission Date: 20120825
  Serious: Yes (Hospitalization, Other)
  Sender: FDA-Public Use
  Company Number: US-ELI_LILLY_AND_COMPANY-US201206003116

PATIENT
  Sex: Male

DRUGS (8)
  1. ALIMTA [Suspect]
     Indication: LUNG NEOPLASM MALIGNANT
     Dosage: 1000 MG/M2
     Dates: start: 20120524
  2. PREDNISONE [Concomitant]
  3. ASPIRIN [Concomitant]
  4. METOPROLOL SUCCINATE [Concomitant]
  5. PREVACID [Concomitant]
  6. ALIMTA [Suspect]
     Dosage: 600 MG/M2, UNK
     Route: 042
     Dates: start: 20120614, end: 20120614
  7. TYLENOL                                 /SCH/ [Concomitant]
  8. MULTI-VITAMIN [Concomitant]

REACTIONS (4)
  - COUGH [None]
  - DYSPNOEA [None]
  - INTERSTITIAL LUNG DISEASE [None]
  - BODY TEMPERATURE INCREASED [None]
